FAERS Safety Report 7692316-0 (Version None)
Quarter: 2011Q3

REPORT INFORMATION
  Report Type: 
  Country: None (occurrence: None)
  Receive Date: 20110818
  Receipt Date: 20110810
  Transmission Date: 20111222
  Serious: Yes (Other)
  Sender: FDA-Public Use
  Company Number: PHEH2009US10830

PATIENT
  Sex: Female

DRUGS (22)
  1. CEPHALEXIN [Concomitant]
  2. KEFLEX [Concomitant]
     Dosage: 500 MG, TID
  3. FEMARA [Concomitant]
     Dosage: 2.5 MG, DAILY
     Route: 048
  4. GEMZAR [Concomitant]
  5. ZOMETA [Suspect]
     Dosage: UNK
     Route: 042
     Dates: start: 20040101
  6. METFORMIN [Concomitant]
  7. LISINOPRIL [Concomitant]
  8. ORAL CONTRACEPTIVE NOS [Concomitant]
  9. CISPLATIN [Concomitant]
  10. XOPENEX [Concomitant]
     Dosage: 0.63 MG, BID
  11. ZOCOR [Concomitant]
  12. OXYCODONE HCL [Concomitant]
  13. SYMBICORT [Concomitant]
  14. FASLODEX [Concomitant]
  15. TAXOL [Concomitant]
  16. CARBOPLATIN [Concomitant]
  17. PENICILLIN [Concomitant]
  18. AMBIEN [Concomitant]
  19. CIPROFLOXACIN [Concomitant]
  20. TAMOXIFEN CITRATE [Concomitant]
  21. CLINDAMYCIN [Concomitant]
  22. ARIMIDEX [Concomitant]

REACTIONS (33)
  - JOINT DISLOCATION [None]
  - OSTEONECROSIS OF JAW [None]
  - NECK PAIN [None]
  - BRONCHIAL HYPERREACTIVITY [None]
  - FATIGUE [None]
  - PRODUCTIVE COUGH [None]
  - SPINAL OSTEOARTHRITIS [None]
  - ATELECTASIS [None]
  - PAIN IN JAW [None]
  - INTRAOCULAR MELANOMA [None]
  - HUMERUS FRACTURE [None]
  - PAIN [None]
  - ARTERIOSCLEROSIS [None]
  - TOOTH LOSS [None]
  - ARTHRALGIA [None]
  - FIBROMYALGIA [None]
  - ADRENAL DISORDER [None]
  - SINUSITIS [None]
  - ARTHRITIS [None]
  - BRONCHITIS [None]
  - INSOMNIA [None]
  - BREAST CALCIFICATIONS [None]
  - BURNS SECOND DEGREE [None]
  - HYPERCHOLESTEROLAEMIA [None]
  - BURSITIS [None]
  - PLEURAL FIBROSIS [None]
  - ANXIETY [None]
  - BONE LESION [None]
  - CONTUSION [None]
  - BONE MARROW OEDEMA [None]
  - ACQUIRED DIAPHRAGMATIC EVENTRATION [None]
  - DYSPNOEA [None]
  - JOINT EFFUSION [None]
